FAERS Safety Report 19638723 (Version 1)
Quarter: 2021Q3

REPORT INFORMATION
  Report Type: Spontaneous
  Country: IT (occurrence: IT)
  Receive Date: 20210730
  Receipt Date: 20210730
  Transmission Date: 20211014
  Serious: Yes (Other)
  Sender: FDA-Public Use
  Company Number: IT-HIKMA PHARMACEUTICALS USA INC.-IT-H14001-21-55076

PATIENT
  Age: 14 Year
  Sex: Male

DRUGS (6)
  1. METHYLPREDNISOLONE. [Suspect]
     Active Substance: METHYLPREDNISOLONE
     Dosage: PULSE METHYLPREDNISOLONE (10 MG/KG A BOLUS TWICE A DAY FOR 3 DAYS)
     Route: 065
     Dates: start: 20210301, end: 202103
  2. ACETYLSALICYLIC ACID [Concomitant]
     Active Substance: ASPIRIN
     Dates: start: 202103
  3. ACETYLSALICYLIC ACID [Concomitant]
     Active Substance: ASPIRIN
     Indication: THROMBOSIS PROPHYLAXIS
     Dosage: UNKNOWN
     Route: 048
     Dates: start: 2021
  4. METHYLPREDNISOLONE. [Suspect]
     Active Substance: METHYLPREDNISOLONE
     Indication: MULTISYSTEM INFLAMMATORY SYNDROME IN CHILDREN
     Dosage: PROGRESSIVELY REDUCED
     Route: 065
     Dates: start: 2021
  5. PREDNISONE. [Suspect]
     Active Substance: PREDNISONE
     Indication: MULTISYSTEM INFLAMMATORY SYNDROME IN CHILDREN
     Dosage: UNKNOWN
     Route: 048
     Dates: start: 202103
  6. PREDNISONE. [Suspect]
     Active Substance: PREDNISONE
     Dosage: STARTED TO TAPER OFF PREDNISONE (UNTIL 1 MG/KG/DAY)
     Route: 048
     Dates: start: 202103

REACTIONS (3)
  - Hepatomegaly [Not Recovered/Not Resolved]
  - Drug-induced liver injury [Not Recovered/Not Resolved]
  - Hepatic steatosis [Not Recovered/Not Resolved]

NARRATIVE: CASE EVENT DATE: 20210323
